FAERS Safety Report 21200682 (Version 1)
Quarter: 2022Q3

REPORT INFORMATION
  Report Type: Spontaneous
  Country: US (occurrence: US)
  Receive Date: 20220811
  Receipt Date: 20220811
  Transmission Date: 20221027
  Serious: No
  Sender: FDA-Public Use
  Company Number: US-009507513-2208USA003455

PATIENT
  Age: 78 Year
  Sex: Male

DRUGS (1)
  1. BELSOMRA [Suspect]
     Active Substance: SUVOREXANT
     Indication: Sleep disorder therapy
     Dosage: 10 MILLIGRAM
     Route: 048
     Dates: start: 20220804

REACTIONS (2)
  - Drug ineffective [Unknown]
  - Agitation [Unknown]

NARRATIVE: CASE EVENT DATE: 20220804
